FAERS Safety Report 10736179 (Version 1)
Quarter: 2015Q1

REPORT INFORMATION
  Report Type: Spontaneous
  Country: BR (occurrence: BR)
  Receive Date: 20150126
  Receipt Date: 20150126
  Transmission Date: 20150721
  Serious: Yes (Disabling, Other)
  Sender: FDA-Public Use
  Company Number: BR-UCBSA-2015002213

PATIENT

DRUGS (1)
  1. CIMZIA [Suspect]
     Active Substance: CERTOLIZUMAB PEGOL
     Indication: PRODUCT USED FOR UNKNOWN INDICATION
     Dosage: DOSE: 200 MG

REACTIONS (7)
  - Cholelithiasis [Not Recovered/Not Resolved]
  - Road traffic accident [Recovered/Resolved]
  - Upper limb fracture [Not Recovered/Not Resolved]
  - Nodule [Recovering/Resolving]
  - Blood pressure [Not Recovered/Not Resolved]
  - Blood glucose abnormal [Not Recovered/Not Resolved]
  - Blood pressure inadequately controlled [None]

NARRATIVE: CASE EVENT DATE: 20141222
